FAERS Safety Report 4557301-6 (Version None)
Quarter: 2005Q1

REPORT INFORMATION
  Report Type: 
  Country: None (occurrence: None)
  Receive Date: 20050118
  Receipt Date: 20050105
  Transmission Date: 20050727
  Serious: Yes (Hospitalization)
  Sender: FDA-Public Use
  Company Number: 2005006072

PATIENT
  Age: 86 Year
  Sex: Female

DRUGS (10)
  1. ZOLOFT [Suspect]
     Indication: ILL-DEFINED DISORDER
     Dosage: UNK (1 IN 1 D), ORAL
     Route: 048
     Dates: start: 20040701, end: 20040903
  2. OMEPRAZOLE [Suspect]
     Indication: GASTRITIS
     Dosage: 10 MG (10 MG, 1 IN 1 D), ORAL
     Route: 048
     Dates: start: 20040701, end: 20040903
  3. ALVERINE [Suspect]
     Indication: ILL-DEFINED DISORDER
     Dosage: 1 (2 IN 2 D), ORAL
     Route: 048
     Dates: start: 20040701, end: 20040903
  4. ETHANOLAMINE ACETYLLEUCINATE [Suspect]
     Indication: ILL-DEFINED DISORDER
     Dosage: 500 MG (1 IN 1 D), ORAL
     Route: 048
     Dates: start: 20040701
  5. ACETYLSALICYLATE LYSINE [Concomitant]
  6. VALSARTAN [Concomitant]
  7. NITROGLYCERIN [Concomitant]
  8. ZOPICLONE [Concomitant]
  9. NAFTIDROFURYL [Concomitant]
  10. INSULIN LISPRO [Concomitant]

REACTIONS (4)
  - ANAEMIA MACROCYTIC [None]
  - ASTHENIA [None]
  - DYSPNOEA [None]
  - HAEMOLYTIC ANAEMIA [None]
